FAERS Safety Report 20419483 (Version 1)
Quarter: 2022Q1

REPORT INFORMATION
  Report Type: Spontaneous
  Country: US (occurrence: US)
  Receive Date: 20220203
  Receipt Date: 20220203
  Transmission Date: 20220423
  Serious: No
  Sender: FDA-Public Use
  Company Number: ENDG21-07072

PATIENT
  Sex: Male

DRUGS (1)
  1. BUPROPION HYDROCHLORIDE [Suspect]
     Active Substance: BUPROPION HYDROCHLORIDE
     Indication: Product used for unknown indication
     Dosage: UNK UNKNOWN, UNKNOWN
     Route: 065

REACTIONS (8)
  - Energy increased [Unknown]
  - Depression [Unknown]
  - Confusional state [Unknown]
  - Feeling jittery [Unknown]
  - Mood swings [Unknown]
  - Irritability [Unknown]
  - Drug ineffective [Unknown]
  - Product formulation issue [Unknown]
